FAERS Safety Report 9348366 (Version 3)
Quarter: 2013Q3

REPORT INFORMATION
  Report Type: Spontaneous
  Country: US (occurrence: US)
  Receive Date: 20130614
  Receipt Date: 20130801
  Transmission Date: 20140515
  Serious: No
  Sender: FDA-Public Use
  Company Number: US-PFIZER INC-2013178463

PATIENT
  Age: 50 Year
  Sex: Female
  Weight: 111 kg

DRUGS (11)
  1. LYRICA [Suspect]
     Indication: NEUROPATHY PERIPHERAL
     Dosage: 100MG IN THE MORNING AND 300MG AT NIGHT, 2X/DAY
     Route: 048
  2. LYRICA [Suspect]
     Indication: FIBROMYALGIA
     Dosage: UNK
     Route: 048
  3. LYRICA [Suspect]
     Indication: PAIN IN EXTREMITY
  4. LYRICA [Suspect]
     Indication: MUSCULOSKELETAL PAIN
  5. LYRICA [Suspect]
     Indication: PAIN
  6. LYRICA [Suspect]
     Indication: NERVE INJURY
  7. BECLOSPIN [Concomitant]
     Indication: MUSCLE SPASMS
     Dosage: 20 MG, 3X/DAY
  8. CYMBALTA [Concomitant]
     Indication: ANXIETY
     Dosage: 60 MG, 1X/DAY
  9. CYMBALTA [Concomitant]
     Indication: DEPRESSION
  10. OMEPRAZOLE [Concomitant]
     Indication: DYSPEPSIA
     Dosage: 30 MG, 2X/DAY
  11. OMEPRAZOLE [Concomitant]
     Indication: GASTRIC ULCER

REACTIONS (9)
  - Weight increased [Unknown]
  - Hepatic enzyme increased [Unknown]
  - Blood triglycerides increased [Unknown]
  - Body height decreased [Unknown]
  - Diplopia [Unknown]
  - Vision blurred [Unknown]
  - Drooling [Unknown]
  - Pain [Not Recovered/Not Resolved]
  - Drug ineffective [Unknown]
